FAERS Safety Report 9727402 (Version 1)
Quarter: 2013Q4

REPORT INFORMATION
  Report Type: Spontaneous
  Country: NL (occurrence: None)
  Receive Date: 20131129
  Receipt Date: 20131129
  Transmission Date: 20140711
  Serious: Yes (Other)
  Sender: FDA-Public Use
  Company Number: 2013AP010019

PATIENT
  Sex: Male

DRUGS (7)
  1. GABAPENTIN [Suspect]
     Indication: TYPE 1 DIABETES MELLITUS
  2. OMEPRAZOLE (OMEPRAZOLE) [Suspect]
  3. INSULIN (INSULIN) [Suspect]
     Indication: TYPE 1 DIABETES MELLITUS
  4. INSULIN ISOPHANE [Suspect]
     Indication: TYPE 1 DIABETES MELLITUS
  5. PREDNISOLONE (PREDNISOLONE) [Concomitant]
  6. NEOMYCIN-POLYMYXIN B SULFATE-GRAMICIDIN (NEOMYCIN-POLYMYXIN B SULFATE-GRMICIDINE) [Concomitant]
  7. ZLFUZOSIN (ALFUZOSIN) [Concomitant]

REACTIONS (5)
  - Hypoglycaemia [None]
  - Drug interaction [None]
  - Loss of consciousness [None]
  - Coma [None]
  - Tremor [None]
